FAERS Safety Report 4718224-2 (Version None)
Quarter: 2005Q3

REPORT INFORMATION
  Report Type: 
  Country: None (occurrence: None)
  Receive Date: 20050719
  Receipt Date: 20050127
  Transmission Date: 20060218
  Serious: Yes (Hospitalization)
  Sender: FDA-Public Use
  Company Number: A-US2004-08027

PATIENT
  Age: 62 Year
  Sex: Male

DRUGS (17)
  1. TRACLEER [Suspect]
     Indication: PULMONARY HYPERTENSION
     Dosage: SEE IMAGE
     Route: 048
     Dates: start: 20040901
  2. TRACLEER [Suspect]
     Indication: PULMONARY HYPERTENSION
     Dosage: SEE IMAGE
     Route: 048
     Dates: start: 20041001
  3. XOPENEX [Suspect]
  4. CYCLOSPORINE [Concomitant]
  5. OXYGEN [Concomitant]
  6. HYDRALAZINE [Concomitant]
  7. MAGNESIUM [Concomitant]
  8. POTASSIUM CHLORIDE [Concomitant]
  9. VITAMINS [Concomitant]
  10. SINGULAIR [Concomitant]
  11. ACETYLSALICYLIC ACID SRT [Concomitant]
  12. DILTIAZEM [Concomitant]
  13. FLOMAX [Concomitant]
  14. MUCINEX [Concomitant]
  15. COMBIVENT (SALBUTAMOL SULFATE, IPRATROPIUM BROMIDE) [Concomitant]
  16. ATROVENT [Concomitant]
  17. PREDNISONE [Concomitant]

REACTIONS (3)
  - DRUG HYPERSENSITIVITY [None]
  - DYSPNOEA EXACERBATED [None]
  - HYPOXIA [None]
